FAERS Safety Report 10333419 (Version 1)
Quarter: 2014Q3

REPORT INFORMATION
  Report Type: Spontaneous
  Country: US (occurrence: US)
  Receive Date: 20140722
  Receipt Date: 20140722
  Transmission Date: 20150326
  Serious: No
  Sender: FDA-Public Use
  Company Number: US-SA-2013SA125649

PATIENT
  Age: 67 Year
  Sex: Male
  Weight: 83.91 kg

DRUGS (5)
  1. CIPROFLOXACIN/TINIDAZOLE [Concomitant]
     Indication: PROSTATIC DISORDER
     Route: 065
     Dates: start: 2000
  2. AMBIEN [Suspect]
     Active Substance: ZOLPIDEM TARTRATE
     Indication: SLEEP DISORDER
     Dosage: DOSE:2 TABS A DAY
     Route: 048
     Dates: start: 19740501
  3. AMBIEN [Suspect]
     Active Substance: ZOLPIDEM TARTRATE
     Indication: SLEEP DISORDER
     Route: 048
  4. LISINOPRIL. [Concomitant]
     Active Substance: LISINOPRIL
     Route: 065
  5. TESTOSTERONE. [Concomitant]
     Active Substance: TESTOSTERONE
     Indication: FATIGUE
     Route: 065
     Dates: start: 2000

REACTIONS (2)
  - Adverse event [Not Recovered/Not Resolved]
  - Eating disorder [Not Recovered/Not Resolved]
